FAERS Safety Report 6225622-7 (Version None)
Quarter: 2009Q2

REPORT INFORMATION
  Report Type: 
  Country: None (occurrence: None)
  Receive Date: 20090612
  Receipt Date: 20090427
  Transmission Date: 20091009
  Serious: No
  Sender: FDA-Public Use
  Company Number: US-ABBOTT-09P-163-0570520-00

PATIENT
  Sex: Male
  Weight: 129.84 kg

DRUGS (3)
  1. HUMIRA [Suspect]
     Indication: CROHN'S DISEASE
     Route: 058
     Dates: start: 20081101, end: 20090410
  2. PREDNISONE [Concomitant]
     Indication: CROHN'S DISEASE
  3. MESALAMINE [Concomitant]
     Indication: CROHN'S DISEASE

REACTIONS (1)
  - INJECTION SITE RASH [None]
